FAERS Safety Report 9475868 (Version 4)
Quarter: 2014Q1

REPORT INFORMATION
  Report Type: Spontaneous
  Country: US (occurrence: US)
  Receive Date: 20130826
  Receipt Date: 20140128
  Transmission Date: 20141002
  Serious: Yes (Hospitalization, Other)
  Sender: FDA-Public Use
  Company Number: US-BIOGENIDEC-2013BI077405

PATIENT
  Sex: Male

DRUGS (1)
  1. AVONEX [Suspect]
     Indication: MULTIPLE SCLEROSIS
     Route: 030
     Dates: start: 19961101

REACTIONS (5)
  - Osteomyelitis [Recovered/Resolved]
  - Decubitus ulcer [Recovered/Resolved]
  - Abasia [Not Recovered/Not Resolved]
  - Staphylococcal infection [Recovered/Resolved]
  - Pain [Recovered/Resolved]
